FAERS Safety Report 24692736 (Version 1)
Quarter: 2024Q4

REPORT INFORMATION
  Report Type: Spontaneous
  Country: US (occurrence: None)
  Receive Date: 20241203
  Receipt Date: 20241203
  Transmission Date: 20250114
  Serious: Yes (Hospitalization)
  Sender: Public
  Company Number: None

PATIENT
  Age: 57 Year
  Sex: Male
  Weight: 123 kg

DRUGS (1)
  1. CEPHALEXIN [Suspect]
     Active Substance: CEPHALEXIN
     Indication: Cellulitis
     Dosage: FREQUENCY : 3 TIMES A DAY;?
     Route: 048
     Dates: end: 20240906

REACTIONS (1)
  - Cutaneous vasculitis [None]

NARRATIVE: CASE EVENT DATE: 20240905
